FAERS Safety Report 8358488 (Version 12)
Quarter: 2012Q4

REPORT INFORMATION
  Report Type: 
  Country: US (occurrence: US)
  Receive Date: 20120127
  Receipt Date: 20121015
  Transmission Date: 20130627
  Serious: Yes (Hospitalization, Disabling, Other)
  Sender: FDA-Public Use
  Company Number: US-009507513-1201USA03455

PATIENT

DRUGS (7)
  1. FOSAMAX [Suspect]
     Indication: OSTEOPOROSIS
     Dosage: 10 mg, UNK
     Route: 048
     Dates: start: 2003, end: 2008
  2. FOSAMAX [Suspect]
     Dosage: 70 mg, QW
     Route: 048
     Dates: start: 2003, end: 2008
  3. EVISTA [Concomitant]
     Indication: OSTEOPOROSIS
     Dates: start: 2004, end: 2010
  4. EVISTA [Concomitant]
     Dosage: 60 mg, qd
     Dates: start: 2004, end: 2010
  5. CALCIUM (UNSPECIFIED) (+) VITAMIN D (UNSPECIFIED) [Concomitant]
     Indication: OSTEOPOROSIS
  6. VITAMIN D (UNSPECIFIED) [Concomitant]
     Indication: OSTEOPOROSIS
  7. CALCIUM (UNSPECIFIED) [Concomitant]
     Indication: OSTEOPOROSIS

REACTIONS (88)
  - Femur fracture [Unknown]
  - Fracture nonunion [Unknown]
  - Post procedural pulmonary embolism [Unknown]
  - Uterine disorder [Unknown]
  - Anaemia postoperative [Recovering/Resolving]
  - Osteoarthritis [Not Recovered/Not Resolved]
  - Deep vein thrombosis [Unknown]
  - Tibia fracture [Unknown]
  - Pulmonary embolism [Unknown]
  - Hypertension [Not Recovered/Not Resolved]
  - Blood cholesterol increased [Not Recovered/Not Resolved]
  - Herpes zoster [Unknown]
  - Low turnover osteopathy [Unknown]
  - Tension headache [Unknown]
  - Impaired healing [Unknown]
  - Anxiety [Not Recovered/Not Resolved]
  - Depression [Not Recovered/Not Resolved]
  - Presbyoesophagus [Unknown]
  - Acquired oesophageal web [Unknown]
  - X-ray of pelvis and hip abnormal [Unknown]
  - Skeletal injury [Unknown]
  - Bone disorder [Unknown]
  - Fracture [Unknown]
  - Bone loss [Unknown]
  - Post procedural complication [Recovering/Resolving]
  - Vision blurred [Unknown]
  - Arterial spasm [Unknown]
  - Retinopathy [Unknown]
  - Diverticulum intestinal [Unknown]
  - Seborrhoeic keratosis [Unknown]
  - Muscular weakness [Unknown]
  - Radiculopathy [Unknown]
  - Neuropathy peripheral [Unknown]
  - Carpal tunnel syndrome [Unknown]
  - Paraesthesia [Not Recovered/Not Resolved]
  - Arthritis [Unknown]
  - Muscle atrophy [Unknown]
  - Synovial cyst [Unknown]
  - Fatigue [Unknown]
  - Cough [Unknown]
  - Hyperlipidaemia [Unknown]
  - Meniscus injury [Unknown]
  - Iron deficiency anaemia [Unknown]
  - Contusion [Unknown]
  - Venous insufficiency [Unknown]
  - Migraine [Unknown]
  - Stress [Unknown]
  - Dyspnoea [Unknown]
  - Osteopenia [Unknown]
  - Cataract [Unknown]
  - Peripheral coldness [Unknown]
  - Skin burning sensation [Unknown]
  - Paraesthesia [Unknown]
  - Hypoaesthesia [Unknown]
  - Incision site complication [Unknown]
  - Pulmonary infarction [Unknown]
  - Fall [Unknown]
  - Ligament injury [Unknown]
  - Cervicobrachial syndrome [Unknown]
  - Spinal column stenosis [Unknown]
  - Arthropathy [Unknown]
  - Tooth disorder [Unknown]
  - Arteriosclerosis coronary artery [Unknown]
  - Intervertebral disc displacement [Unknown]
  - Carpal tunnel syndrome [Unknown]
  - Lumbar spinal stenosis [Unknown]
  - Dry mouth [Unknown]
  - Dental caries [Unknown]
  - Tooth extraction [Unknown]
  - Tooth fracture [Unknown]
  - Spinal osteoarthritis [Unknown]
  - Pruritus [Unknown]
  - Flatulence [Unknown]
  - Arthralgia [Unknown]
  - Diarrhoea [Unknown]
  - Headache [Unknown]
  - Pyrexia [Unknown]
  - Drug ineffective [Unknown]
  - Neck pain [Not Recovered/Not Resolved]
  - Pain in extremity [Unknown]
  - Myalgia [Unknown]
  - Oedema peripheral [Unknown]
  - Erosive oesophagitis [Unknown]
  - Dyspepsia [Unknown]
  - Intervertebral disc protrusion [None]
  - Wheelchair user [None]
  - Device failure [None]
  - Osteonecrosis of jaw [None]
